FAERS Safety Report 21082907 (Version 2)
Quarter: 2022Q3

REPORT INFORMATION
  Report Type: Spontaneous
  Country: US (occurrence: US)
  Receive Date: 20220714
  Receipt Date: 20220825
  Transmission Date: 20221027
  Serious: No
  Sender: FDA-Public Use
  Company Number: US-BRISTOL-MYERS SQUIBB COMPANY-2022-071691

PATIENT
  Age: 71 Year
  Sex: Male

DRUGS (2)
  1. REVLIMID [Suspect]
     Active Substance: LENALIDOMIDE
     Indication: Plasma cell myeloma
     Dosage: TAKE 1 CAPSULE BY MOUTH EVERY OTHER DAY DAYS 1 THRU 21 EVERY 28 DAYS.
     Route: 048
     Dates: start: 20190205
  2. DARZALEX SOL [Concomitant]
     Indication: Product used for unknown indication
     Dosage: 100MG/5M
     Route: 065

REACTIONS (1)
  - Diarrhoea [Unknown]
